FAERS Safety Report 19681994 (Version 2)
Quarter: 2021Q3

REPORT INFORMATION
  Report Type: Report from Study
  Country: IL (occurrence: IL)
  Receive Date: 20210810
  Receipt Date: 20210818
  Transmission Date: 20211014
  Serious: Yes (Hospitalization)
  Sender: FDA-Public Use
  Company Number: IL-EXELIXIS-XL18421043057

PATIENT
  Age: 70 Year
  Sex: Male

DRUGS (6)
  1. BLINDED XL184 [Suspect]
     Active Substance: CABOZANTINIB
     Indication: MEDULLARY THYROID CANCER
     Dosage: 60 MG, QD
     Dates: start: 20180815
  2. BLINDED XL184 [Suspect]
     Active Substance: CABOZANTINIB
     Indication: MEDULLARY THYROID CANCER
     Dosage: 60 MG, QD
     Dates: start: 20180815
  3. BLINDED XL184 [Suspect]
     Active Substance: CABOZANTINIB
     Dosage: 20 MG, QD
     Route: 048
  4. BLINDED XL184 [Suspect]
     Active Substance: CABOZANTINIB
     Dosage: 20 MG, QD
     Route: 048
  5. LEVOTHYROXINE. [Concomitant]
     Active Substance: LEVOTHYROXINE
  6. TRITACE [Concomitant]
     Active Substance: RAMIPRIL

REACTIONS (1)
  - Spinal laminectomy [Recovered/Resolved with Sequelae]

NARRATIVE: CASE EVENT DATE: 20210729
